FAERS Safety Report 11519920 (Version 1)
Quarter: 2015Q3

REPORT INFORMATION
  Report Type: Spontaneous
  Country: US (occurrence: None)
  Receive Date: 20150917
  Receipt Date: 20150917
  Transmission Date: 20151125
  Serious: No
  Sender: FDA-Public Use
  Company Number: None

PATIENT
  Age: 22 Year
  Sex: Female

DRUGS (1)
  1. NEORAL [Suspect]
     Active Substance: CYCLOSPORINE
     Dosage: 25MG AND 100MG

REACTIONS (2)
  - Parosmia [None]
  - Dysgeusia [None]

NARRATIVE: CASE EVENT DATE: 20150916
